FAERS Safety Report 5454586-9 (Version None)
Quarter: 2007Q3

REPORT INFORMATION
  Report Type: 
  Country: None (occurrence: None)
  Receive Date: 20070917
  Receipt Date: 20061006
  Transmission Date: 20080115
  Serious: No
  Sender: FDA-Public Use
  Company Number: US-ASTRAZENECA-2006UW19525

PATIENT
  Sex: Female

DRUGS (1)
  1. SEROQUEL [Suspect]
     Indication: BIPOLAR DISORDER
     Route: 048
     Dates: start: 20061005

REACTIONS (6)
  - ASTHENIA [None]
  - HEART RATE INCREASED [None]
  - HYPOKINESIA [None]
  - MEDICATION ERROR [None]
  - MUSCLE TWITCHING [None]
  - THINKING ABNORMAL [None]
